FAERS Safety Report 14392422 (Version 1)
Quarter: 2018Q1

REPORT INFORMATION
  Report Type: Spontaneous
  Country: US (occurrence: US)
  Receive Date: 20180112
  Receipt Date: 20180112
  Transmission Date: 20180509
  Serious: Yes (Hospitalization)
  Sender: FDA-Public Use
  Company Number: None

PATIENT
  Age: 39 Year
  Sex: Female
  Weight: 78.5 kg

DRUGS (1)
  1. MULTIHANCE [Suspect]
     Active Substance: GADOBENATE DIMEGLUMINE
     Dosage: ?          OTHER FREQUENCY:ONCE;?
     Route: 040
     Dates: start: 20180105

REACTIONS (9)
  - Hyperhidrosis [None]
  - Pupil fixed [None]
  - Headache [None]
  - Syncope [None]
  - Vomiting [None]
  - Nausea [None]
  - Pruritus [None]
  - Dizziness [None]
  - Rash [None]

NARRATIVE: CASE EVENT DATE: 20180105
